FAERS Safety Report 20960163 (Version 2)
Quarter: 2022Q3

REPORT INFORMATION
  Report Type: Spontaneous
  Country: GB (occurrence: GB)
  Receive Date: 20220615
  Receipt Date: 20220817
  Transmission Date: 20221027
  Serious: Yes (Other)
  Sender: FDA-Public Use
  Company Number: GB-NOVARTISPH-NVSC2022GB131912

PATIENT
  Sex: Female
  Weight: 2.3 kg

DRUGS (13)
  1. BISOPROLOL [Suspect]
     Active Substance: BISOPROLOL
     Indication: Foetal exposure during pregnancy
     Dosage: MATERNAL EXPOSURE DURING PREGNANCY: 2.5 MG
     Route: 064
  2. FUROSEMIDE [Suspect]
     Active Substance: FUROSEMIDE
     Indication: Foetal exposure during pregnancy
     Dosage: MATERNAL EXPOSURE DURING PREGNANCY: 20 MG
     Route: 064
  3. DIAMORPHINE [Suspect]
     Active Substance: DIAMORPHINE
     Indication: Foetal exposure during pregnancy
     Dosage: MATERNAL EXPOSURE DURING PREGNANCY: 5 MG
     Route: 064
  4. DIAMORPHINE [Suspect]
     Active Substance: DIAMORPHINE
     Dosage: MATERNAL EXPOSURE DURING PREGNANCY: 300 UG
     Route: 064
  5. POTASSIUM CHLORIDE [Suspect]
     Active Substance: POTASSIUM CHLORIDE
     Indication: Foetal exposure during pregnancy
     Dosage: MATERNAL EXPOSURE DURING PREGNANCY: UNK
     Route: 064
  6. MAGNESIUM [Suspect]
     Active Substance: MAGNESIUM
     Indication: Foetal exposure during pregnancy
     Dosage: MATERNAL EXPOSURE DURING PREGNANCY: UNK
     Route: 064
  7. TINZAPARIN [Suspect]
     Active Substance: TINZAPARIN
     Indication: Foetal exposure during pregnancy
     Dosage: MATERNAL EXPOSURE DURING PREGNANCY: 4500 IU
     Route: 064
  8. BUPIVACAINE [Suspect]
     Active Substance: BUPIVACAINE
     Indication: Foetal exposure during pregnancy
     Dosage: MATERNAL EXPOSURE DURING PREGNANCY: 5 ML OF 0.1 PERCENT (TEST DOSE)
     Route: 064
  9. BUPIVACAINE [Suspect]
     Active Substance: BUPIVACAINE
     Dosage: MATERNAL EXPOSURE DURING PREGNANCY: 7.5 MG (INJECTION AT L4?5 INTERSPACE)
     Route: 064
  10. CALCIUM CHLORIDE\POTASSIUM CHLORIDE\SODIUM CHLORIDE\SODIUM LACTATE [Suspect]
     Active Substance: CALCIUM CHLORIDE\POTASSIUM CHLORIDE\SODIUM CHLORIDE\SODIUM LACTATE
     Indication: Foetal exposure during pregnancy
     Dosage: MATERNAL EXPOSURE DURING PREGNANCY: 500 ML
     Route: 064
  11. PHENYLEPHRINE [Suspect]
     Active Substance: PHENYLEPHRINE HYDROCHLORIDE
     Indication: Foetal exposure during pregnancy
     Dosage: MATERNAL EXPOSURE DURING PREGNANCY: 100 MCG/ML AT THE RATE OF 30 ML/H
     Route: 064
  12. ROPIVACAINE [Suspect]
     Active Substance: ROPIVACAINE
     Indication: Foetal exposure during pregnancy
     Dosage: MATERNAL EXPOSURE DURING PREGNANCY: 5 ML
     Route: 064
  13. OXYTOCIN [Suspect]
     Active Substance: OXYTOCIN
     Indication: Foetal exposure during pregnancy
     Dosage: MATERNAL EXPOSURE DURING PREGNANCY: 5 IU
     Route: 064

REACTIONS (3)
  - Premature baby [Unknown]
  - Low birth weight baby [Unknown]
  - Foetal exposure during pregnancy [Unknown]
